FAERS Safety Report 5139325-3 (Version None)
Quarter: 2006Q4

REPORT INFORMATION
  Report Type: 
  Country: None (occurrence: None)
  Receive Date: 20061024
  Receipt Date: 20061011
  Transmission Date: 20070319
  Serious: Yes (Hospitalization)
  Sender: FDA-Public Use
  Company Number: 2006BI011810

PATIENT
  Age: 54 Year
  Sex: Male

DRUGS (9)
  1. AVONEX [Suspect]
     Indication: MULTIPLE SCLEROSIS
     Dosage: 30 UG; QW; IM
     Route: 030
     Dates: start: 19960601, end: 20060101
  2. BACLOFEN [Concomitant]
  3. KLONOPIN [Concomitant]
  4. LEXAPRO [Concomitant]
  5. LIPITOR [Concomitant]
  6. TIMOPTIC [Concomitant]
  7. VERAPAMIL [Concomitant]
  8. PROVIGIL [Concomitant]
  9. NEURONTIN [Concomitant]

REACTIONS (2)
  - HIP ARTHROPLASTY [None]
  - OSTEOARTHRITIS [None]
